FAERS Safety Report 24971706 (Version 2)
Quarter: 2025Q4

REPORT INFORMATION
  Report Type: Report from Study
  Country: US (occurrence: US)
  Receive Date: 20250214
  Receipt Date: 20251231
  Transmission Date: 20260117
  Serious: Yes (Other)
  Sender: PFIZER
  Company Number: US-PFIZER INC-202500032961

PATIENT
  Age: 75 Year
  Sex: Female

DRUGS (5)
  1. IBRANCE [Suspect]
     Active Substance: PALBOCICLIB
     Indication: Breast cancer female
     Dosage: 100 MG, CYCLIC (ON DAYS 1-21 EVERY 28 DAYS)
     Dates: start: 202011
  2. TRESIBA [Concomitant]
     Active Substance: INSULIN DEGLUDEC
     Dosage: UNK
  3. JANUVIA [Concomitant]
     Active Substance: SITAGLIPTIN PHOSPHATE
     Dosage: UNK
  4. OXYBUTYNIN [Concomitant]
     Active Substance: OXYBUTYNIN
     Dosage: UNK
  5. LETROZOLE [Concomitant]
     Active Substance: LETROZOLE
     Dosage: UNK

REACTIONS (4)
  - Stress [Recovered/Resolved]
  - Cardiac flutter [Recovered/Resolved]
  - Rash erythematous [Recovered/Resolved]
  - Urinary tract infection [Recovered/Resolved]

NARRATIVE: CASE EVENT DATE: 20240701
